FAERS Safety Report 4930022-3 (Version None)
Quarter: 2006Q1

REPORT INFORMATION
  Report Type: 
  Country: None (occurrence: None)
  Receive Date: 20060228
  Receipt Date: 20060222
  Transmission Date: 20060701
  Serious: Yes (Death, Hospitalization)
  Sender: FDA-Public Use
  Company Number: 2006BI000366

PATIENT
  Age: 66 Year
  Sex: Male

DRUGS (1)
  1. AVONEX [Suspect]
     Indication: MULTIPLE SCLEROSIS
     Dosage: 30 UG; QW; IM
     Route: 030
     Dates: start: 20040115, end: 20051226

REACTIONS (4)
  - DECUBITUS ULCER [None]
  - ILL-DEFINED DISORDER [None]
  - URINARY TRACT INFECTION [None]
  - WEIGHT DECREASED [None]
